FAERS Safety Report 24851089 (Version 1)
Quarter: 2025Q1

REPORT INFORMATION
  Report Type: Spontaneous
  Country: CA (occurrence: CA)
  Receive Date: 20250116
  Receipt Date: 20250116
  Transmission Date: 20250409
  Serious: Yes (Disabling)
  Sender: ALCON
  Company Number: CA-ALCON LABORATORIES-ALC2025CA000553

PATIENT
  Age: 5 Year
  Sex: Female

DRUGS (1)
  1. CYCLOGYL [Suspect]
     Active Substance: CYCLOPENTOLATE HYDROCHLORIDE
     Indication: Cycloplegic refraction
     Route: 061

REACTIONS (4)
  - Balance disorder [Recovered/Resolved]
  - Panic reaction [Recovered/Resolved]
  - Disorientation [Recovered/Resolved]
  - Hallucination [Recovered/Resolved]
